FAERS Safety Report 5661826-X (Version None)
Quarter: 2008Q1

REPORT INFORMATION
  Report Type: 
  Country: None (occurrence: None)
  Receive Date: 20080312
  Receipt Date: 20080305
  Transmission Date: 20080703
  Serious: Yes (Other)
  Sender: FDA-Public Use
  Company Number: JP-MERCK-0712USA02490

PATIENT
  Age: 78 Year
  Sex: Female
  Weight: 56 kg

DRUGS (6)
  1. HYZAAR [Suspect]
     Indication: HYPERTENSION
     Route: 048
     Dates: start: 20070805, end: 20070815
  2. DIART [Concomitant]
     Indication: HYPERTENSION
     Route: 048
     Dates: start: 20070801
  3. NORVASC [Concomitant]
     Route: 048
     Dates: start: 20070801, end: 20070804
  4. OLMESARTAN MEDOXOMIL [Concomitant]
     Route: 048
     Dates: start: 20070801, end: 20070804
  5. ALDACTONE [Concomitant]
     Indication: HYPERTENSION
     Route: 048
     Dates: start: 20070801
  6. ALEXIN (LANSOPRAZOLE) [Concomitant]
     Route: 048
     Dates: start: 20070801

REACTIONS (1)
  - MENTAL DISORDER [None]
